FAERS Safety Report 19932112 (Version 1)
Quarter: 2021Q4

REPORT INFORMATION
  Report Type: Spontaneous
  Country: US (occurrence: US)
  Receive Date: 20211007
  Receipt Date: 20211007
  Transmission Date: 20220303
  Serious: No
  Sender: FDA-Public Use
  Company Number: US-ELI_LILLY_AND_COMPANY-US202110002699

PATIENT
  Age: 32 Year
  Sex: Female

DRUGS (8)
  1. TADALAFIL [Suspect]
     Active Substance: TADALAFIL
     Indication: Pulmonary arterial hypertension
     Dosage: 20 MG, DAILY
     Route: 048
     Dates: start: 2014
  2. ORENITRAM [Suspect]
     Active Substance: TREPROSTINIL
     Indication: Pulmonary arterial hypertension
     Dosage: 2 MG, TID
     Route: 048
     Dates: start: 20210805
  3. DIGOXIN [Concomitant]
     Active Substance: DIGOXIN
     Indication: Cardiac failure
     Dosage: 125 UG, EACH MORNING
     Route: 048
     Dates: start: 2014
  4. AMBRISENTAN [Concomitant]
     Active Substance: AMBRISENTAN
     Indication: Pulmonary arterial hypertension
     Dosage: 10 MG, DAILY
     Route: 048
     Dates: start: 2014
  5. TORSEMIDE [Concomitant]
     Active Substance: TORSEMIDE
     Indication: Oedema
     Dosage: UNK UNK, BID (100 MG, 1/2 AM AND PM)
     Route: 048
     Dates: start: 202107
  6. APPLE CIDER VINEGAR [Concomitant]
     Active Substance: APPLE CIDER VINEGAR
     Indication: Gastric pH decreased
     Dosage: UNK UNK, PRN
     Route: 048
     Dates: start: 202006
  7. MVI [VITAMINS NOS] [Concomitant]
     Indication: Supplementation therapy
     Dosage: UNK UNK, DAILY
     Route: 048
     Dates: start: 2014
  8. SPIRONOLACTONE [Concomitant]
     Active Substance: SPIRONOLACTONE
     Indication: Oedema
     Dosage: 25 MG, DAILY
     Route: 048
     Dates: start: 2014

REACTIONS (5)
  - Gastric pH decreased [Unknown]
  - Vomiting [Recovering/Resolving]
  - Dizziness [Recovering/Resolving]
  - Nasal congestion [Not Recovered/Not Resolved]
  - Product dose omission issue [Unknown]

NARRATIVE: CASE EVENT DATE: 20210910
